FAERS Safety Report 10088940 (Version 1)
Quarter: 2014Q2

REPORT INFORMATION
  Report Type: Spontaneous
  Country: US (occurrence: None)
  Receive Date: 20140418
  Receipt Date: 20140418
  Transmission Date: 20141212
  Serious: Yes (Other)
  Sender: FDA-Public Use
  Company Number: None

PATIENT
  Age: 67 Year
  Sex: Male
  Weight: 99.79 kg

DRUGS (9)
  1. LIVALO [Suspect]
     Indication: BLOOD CHOLESTEROL INCREASED
     Route: 048
     Dates: start: 20140310, end: 20140330
  2. FAMOTIDINE [Concomitant]
  3. PLAVIX [Concomitant]
  4. METOPROLOL ER [Concomitant]
  5. METFORMIN ER [Concomitant]
  6. PRINIVIL [Concomitant]
  7. ASPIRIN [Concomitant]
  8. FISH OIL [Concomitant]
  9. ONE A DAY MENS VITAMIN [Concomitant]

REACTIONS (3)
  - Counterfeit drug administered [None]
  - Laboratory test abnormal [None]
  - Product quality issue [None]
